FAERS Safety Report 23842882 (Version 1)
Quarter: 2024Q2

REPORT INFORMATION
  Report Type: Report from Study
  Country: PH (occurrence: PH)
  Receive Date: 20240510
  Receipt Date: 20240510
  Transmission Date: 20240716
  Serious: Yes (Other)
  Sender: FDA-Public Use
  Company Number: PH-OTSUKA-2024_012955

PATIENT
  Sex: Male

DRUGS (1)
  1. TOLVAPTAN [Suspect]
     Active Substance: TOLVAPTAN
     Indication: Product used for unknown indication
     Dosage: 1 DF, QD (SAMSCA 15 MG ONE TABLET ONCE A DAY)
     Route: 048
     Dates: start: 202401, end: 202403

REACTIONS (1)
  - Venous occlusion [Unknown]
